FAERS Safety Report 21613077 (Version 1)
Quarter: 2022Q4

REPORT INFORMATION
  Report Type: Other
  Country: US (occurrence: None)
  Receive Date: 20221118
  Receipt Date: 20221118
  Transmission Date: 20230113
  Serious: Yes (Other)
  Sender: FDA-Public Use
  Company Number: US-ROCHE-3220385

PATIENT
  Sex: Female

DRUGS (1)
  1. EVRYSDI [Suspect]
     Active Substance: RISDIPLAM
     Indication: Muscular dystrophy
     Route: 065

REACTIONS (1)
  - Asthenia [Unknown]
